FAERS Safety Report 9436482 (Version 1)
Quarter: 2013Q3

REPORT INFORMATION
  Report Type: Spontaneous
  Country: JP (occurrence: JP)
  Receive Date: 20130802
  Receipt Date: 20130802
  Transmission Date: 20140515
  Serious: Yes (Other)
  Sender: FDA-Public Use
  Company Number: JP-ROCHE-1254838

PATIENT
  Age: 81 Year
  Sex: Female

DRUGS (2)
  1. DORMICUM (INJ) [Suspect]
     Indication: SEDATION
     Dosage: (30 TUBEFULS) FOR SEDATION (DURATION: ABOUT 2 TO 3 WEEKS).
     Route: 041
  2. ANEXATE [Suspect]
     Indication: REVERSAL OF SEDATION
     Route: 042

REACTIONS (2)
  - Sedation [Unknown]
  - Intentional drug misuse [Unknown]
